FAERS Safety Report 18782487 (Version 1)
Quarter: 2021Q1

REPORT INFORMATION
  Report Type: Spontaneous
  Country: US (occurrence: US)
  Receive Date: 20210125
  Receipt Date: 20210125
  Transmission Date: 20210419
  Serious: No
  Sender: FDA-Public Use
  Company Number: US-ALLERGAN-2043571US

PATIENT
  Age: 52 Year
  Sex: Male

DRUGS (2)
  1. RESTASIS [Suspect]
     Active Substance: CYCLOSPORINE
     Indication: DRY EYE
     Dosage: 2 GTT, QD
     Route: 047
     Dates: start: 202002
  2. METHOTREXATE. [Concomitant]
     Active Substance: METHOTREXATE
     Indication: PSORIATIC ARTHROPATHY

REACTIONS (3)
  - Incorrect dose administered [Unknown]
  - Multiple use of single-use product [Unknown]
  - Drug ineffective [Unknown]
